FAERS Safety Report 5493953-4 (Version None)
Quarter: 2007Q4

REPORT INFORMATION
  Report Type: 
  Country: None (occurrence: None)
  Receive Date: 20071019
  Receipt Date: 20071011
  Transmission Date: 20080405
  Serious: Yes (Hospitalization)
  Sender: FDA-Public Use
  Company Number: 2007BI017393

PATIENT
  Age: 27 Year
  Sex: Male

DRUGS (10)
  1. AVONEX [Suspect]
     Indication: MULTIPLE SCLEROSIS
     Dosage: 30 UG;QW;IM
     Route: 030
     Dates: start: 20061127, end: 20070409
  2. AVONEX [Suspect]
     Indication: MULTIPLE SCLEROSIS
     Dosage: 30 UG;QW;IM
     Route: 030
     Dates: start: 20070623, end: 20070701
  3. BACLOFEN [Concomitant]
  4. DOCUSATE SODIUM [Concomitant]
  5. MIRALAX [Concomitant]
  6. OSCAL [Concomitant]
  7. NEURONTIN [Concomitant]
  8. ENABLEX [Concomitant]
  9. IBUPROFEN [Concomitant]
  10. CLONAZEPAM [Concomitant]

REACTIONS (3)
  - DRUG ABUSE [None]
  - LOSS OF CONSCIOUSNESS [None]
  - SEDATION [None]
